FAERS Safety Report 12012726 (Version 1)
Quarter: 2016Q1

REPORT INFORMATION
  Report Type: Report from Study
  Country: BR (occurrence: BR)
  Receive Date: 20160205
  Receipt Date: 20160205
  Transmission Date: 20160526
  Serious: Yes (Other)
  Sender: FDA-Public Use
  Company Number: PHHY2016BR014544

PATIENT
  Sex: Female
  Weight: 53 kg

DRUGS (1)
  1. DIOVAN [Suspect]
     Active Substance: VALSARTAN
     Indication: BLOOD PRESSURE ABNORMAL
     Dosage: 1 DF, BID (ONE IN MORNING AND ONE AT NIGHT)
     Route: 048
     Dates: start: 201509, end: 201511

REACTIONS (3)
  - Blood pressure increased [Recovering/Resolving]
  - Thrombosis [Unknown]
  - Blood pressure fluctuation [Unknown]
